FAERS Safety Report 7433492-4 (Version None)
Quarter: 2011Q2

REPORT INFORMATION
  Report Type: 
  Country: None (occurrence: None)
  Receive Date: 20110422
  Receipt Date: 20110222
  Transmission Date: 20111010
  Serious: No
  Sender: FDA-Public Use
  Company Number: US-MUTUAL PHARMACEUTICAL COMPANY, INC.-CLCY20110018

PATIENT
  Age: 29 Year
  Sex: Female

DRUGS (3)
  1. COLCRYS [Suspect]
     Indication: FAMILIAL MEDITERRANEAN FEVER
     Route: 048
     Dates: start: 20101011, end: 20110222
  2. SYNTHROID [Concomitant]
     Indication: HYPOTHYROIDISM
     Route: 048
  3. FERREX [Concomitant]
     Indication: PREGNANCY
     Route: 048

REACTIONS (2)
  - DIARRHOEA [None]
  - DRUG EXPOSURE DURING PREGNANCY [None]
